FAERS Safety Report 18328773 (Version 1)
Quarter: 2020Q3

REPORT INFORMATION
  Report Type: Spontaneous
  Country: US (occurrence: US)
  Receive Date: 20200930
  Receipt Date: 20200930
  Transmission Date: 20201103
  Serious: Yes (Death)
  Sender: FDA-Public Use
  Company Number: US-FERRINGPH-2020FE06577

PATIENT
  Age: 20 Year
  Sex: Female

DRUGS (1)
  1. STIMATE [Suspect]
     Active Substance: DESMOPRESSIN ACETATE
     Indication: VON WILLEBRAND^S DISEASE
     Dosage: 1 SPRAY AS NEEDED
     Route: 045
     Dates: start: 20180518

REACTIONS (3)
  - Out of specification product use [Unknown]
  - Road traffic accident [Fatal]
  - Recalled product administered [Unknown]

NARRATIVE: CASE EVENT DATE: 20200907
